FAERS Safety Report 8807831 (Version 2)
Quarter: 2012Q4

REPORT INFORMATION
  Report Type: 
  Country: CR (occurrence: CR)
  Receive Date: 20120925
  Receipt Date: 20121001
  Transmission Date: 20130627
  Serious: Yes (Other)
  Sender: FDA-Public Use
  Company Number: CR-GLAXOSMITHKLINE-A0994091A

PATIENT
  Age: 57 Year
  Sex: Male

DRUGS (2)
  1. PAXIL CR [Suspect]
     Indication: INSOMNIA
     Dosage: 1TAB At night
     Route: 048
     Dates: end: 20120914
  2. ALLOPURINOL [Concomitant]
     Indication: HYPERURICAEMIA
     Route: 065

REACTIONS (6)
  - Road traffic accident [Unknown]
  - Somnolence [Unknown]
  - Diarrhoea [Recovered/Resolved]
  - Thirst [Recovered/Resolved]
  - Dizziness [Recovered/Resolved]
  - Off label use [Unknown]
